FAERS Safety Report 8874557 (Version 1)
Quarter: 2012Q4

REPORT INFORMATION
  Report Type: 
  Country: US (occurrence: US)
  Receive Date: 20121030
  Receipt Date: 20121030
  Transmission Date: 20130627
  Serious: No
  Sender: FDA-Public Use
  Company Number: US-PFIZER INC-2012268301

PATIENT
  Age: 54 Year
  Sex: Female
  Weight: 58.96 kg

DRUGS (3)
  1. PRISTIQ [Suspect]
     Indication: POST-TRAUMATIC STRESS DISORDER
     Dosage: 50 mg, 1x/day
     Route: 048
     Dates: start: 201210, end: 201210
  2. PRISTIQ [Suspect]
     Indication: PANIC DISORDER
  3. XANAX [Concomitant]
     Dosage: UNK

REACTIONS (2)
  - Back pain [Unknown]
  - Headache [Recovered/Resolved]
